FAERS Safety Report 4680862-3 (Version None)
Quarter: 2005Q2

REPORT INFORMATION
  Report Type: 
  Country: None (occurrence: None)
  Receive Date: 20050531
  Receipt Date: 20050531
  Transmission Date: 20051028
  Serious: No
  Sender: FDA-Public Use
  Company Number: None

PATIENT
  Sex: Female

DRUGS (1)
  1. LOPROX [Suspect]
     Indication: CANDIDIASIS
     Dosage: TOPICALLY TWICE DAILY
     Route: 061

REACTIONS (1)
  - CONDITION AGGRAVATED [None]
